FAERS Safety Report 20821377 (Version 1)
Quarter: 2022Q2

REPORT INFORMATION
  Report Type: Spontaneous
  Country: US (occurrence: US)
  Receive Date: 20220512
  Receipt Date: 20220512
  Transmission Date: 20220720
  Serious: No
  Sender: FDA-Public Use
  Company Number: US-PFIZER INC-202200649852

PATIENT
  Age: 89 Year
  Sex: Female
  Weight: 75.751 kg

DRUGS (2)
  1. CALAN SR [Suspect]
     Active Substance: VERAPAMIL HYDROCHLORIDE
     Indication: Hypertension
     Dosage: 180 MG, 1X/DAY (AT BEDTIME)
     Route: 048
  2. CALAN SR [Suspect]
     Active Substance: VERAPAMIL HYDROCHLORIDE
     Indication: Autonomic neuropathy

REACTIONS (1)
  - Drug ineffective [Unknown]
